FAERS Safety Report 8403638-X (Version None)
Quarter: 2012Q2

REPORT INFORMATION
  Report Type: 
  Country: None (occurrence: None)
  Receive Date: 20120601
  Receipt Date: 20120522
  Transmission Date: 20120825
  Serious: Yes (Death)
  Sender: FDA-Public Use
  Company Number: US-ACTELION-A-US2012-66339

PATIENT

DRUGS (5)
  1. SILDENAFIL [Concomitant]
  2. ASPIRIN [Concomitant]
  3. PRADAXA [Concomitant]
  4. PLAVIX [Concomitant]
  5. TRACLEER [Suspect]
     Indication: PULMONARY ARTERIAL HYPERTENSION
     Dosage: UNK
     Route: 048
     Dates: start: 20120131

REACTIONS (1)
  - DEATH [None]
